FAERS Safety Report 5910779-5 (Version None)
Quarter: 2008Q4

REPORT INFORMATION
  Report Type: 
  Country: None (occurrence: None)
  Receive Date: 20081007
  Receipt Date: 20080926
  Transmission Date: 20090506
  Serious: Yes (Hospitalization, Other)
  Sender: FDA-Public Use
  Company Number: US-ASTRAZENECA-2008UW08723

PATIENT
  Age: 51 Year
  Sex: Female
  Weight: 64 kg

DRUGS (4)
  1. ARIMIDEX [Suspect]
     Indication: BREAST CANCER
     Route: 048
     Dates: start: 20071201, end: 20080601
  2. FOSAMAX [Concomitant]
     Dates: start: 20080401
  3. TYLENOL (CAPLET) [Concomitant]
  4. MOTRIN [Concomitant]

REACTIONS (11)
  - BLINDNESS [None]
  - ECZEMA [None]
  - MENISCUS LESION [None]
  - OEDEMA [None]
  - OSTEOPENIA [None]
  - PETECHIAE [None]
  - SOFT TISSUE DISORDER [None]
  - TENDONITIS [None]
  - TRIGGER FINGER [None]
  - VARICOSE VEIN RUPTURED [None]
  - WHITE BLOOD CELL COUNT DECREASED [None]
